FAERS Safety Report 10227512 (Version 5)
Quarter: 2015Q2

REPORT INFORMATION
  Report Type: Spontaneous
  Country: US (occurrence: US)
  Receive Date: 20140610
  Receipt Date: 20150511
  Transmission Date: 20150821
  Serious: Yes (Other)
  Sender: FDA-Public Use
  Company Number: PHEH2014US011256

PATIENT
  Sex: Female
  Weight: 63.5 kg

DRUGS (3)
  1. FASLODEX [Concomitant]
     Active Substance: FULVESTRANT
     Indication: PRODUCT USED FOR UNKNOWN INDICATION
     Route: 065
  2. HERCEPTIN [Concomitant]
     Active Substance: TRASTUZUMAB
     Indication: PRODUCT USED FOR UNKNOWN INDICATION
     Route: 065
  3. ZOMETA [Suspect]
     Active Substance: ZOLEDRONIC ACID
     Indication: METASTASES TO BONE
     Route: 065
     Dates: start: 2007, end: 2012

REACTIONS (61)
  - Mechanical urticaria [Unknown]
  - Fall [Unknown]
  - Fibrosis [Unknown]
  - Gingival bleeding [Unknown]
  - Mastication disorder [Unknown]
  - Hypoaesthesia [Unknown]
  - Breath odour [Unknown]
  - Hot flush [Unknown]
  - Oral pain [Unknown]
  - Musculoskeletal pain [Unknown]
  - Headache [Unknown]
  - Oral disorder [Unknown]
  - Primary sequestrum [Unknown]
  - Bone swelling [Unknown]
  - Erythema [Unknown]
  - Sinus tachycardia [Unknown]
  - Weight decreased [Unknown]
  - Hypersomnia [Unknown]
  - Loose tooth [Unknown]
  - Osteitis [Unknown]
  - Cellulitis [Unknown]
  - Arthropathy [Unknown]
  - Myalgia [Unknown]
  - Goitre [Unknown]
  - Myositis [Unknown]
  - Osteomyelitis [Unknown]
  - Spondylolisthesis [Unknown]
  - Dental caries [Unknown]
  - Periodontitis [Unknown]
  - Bone cancer [Unknown]
  - Arthralgia [Unknown]
  - Pyrexia [Unknown]
  - Bone lesion [Unknown]
  - Periostitis [Unknown]
  - Pathological fracture [Unknown]
  - Hip fracture [Unknown]
  - Skin infection [Unknown]
  - Anaemia [Unknown]
  - Hepatic steatosis [Unknown]
  - Spinal osteoarthritis [Unknown]
  - Sensitivity of teeth [Unknown]
  - Pruritus [Unknown]
  - Fatigue [Unknown]
  - Jaw fracture [Unknown]
  - Alveolar osteitis [Unknown]
  - Bone fistula [Unknown]
  - Left ventricular failure [Unknown]
  - Malignant melanoma [Unknown]
  - Dental plaque [Unknown]
  - Tooth deposit [Unknown]
  - Osteonecrosis of jaw [Unknown]
  - Lip and/or oral cavity cancer [Unknown]
  - Osteoarthritis [Unknown]
  - Pain in jaw [Unknown]
  - Osteosclerosis [Unknown]
  - Swelling face [Unknown]
  - Vitamin D deficiency [Unknown]
  - Second primary malignancy [Unknown]
  - Gingival pain [Unknown]
  - Asthenia [Unknown]
  - Osteoporosis [Unknown]
